FAERS Safety Report 4290479-0 (Version None)
Quarter: 2004Q1

REPORT INFORMATION
  Report Type: 
  Country: None (occurrence: None)
  Receive Date: 20040209
  Receipt Date: 20040126
  Transmission Date: 20041129
  Serious: Yes (Death)
  Sender: FDA-Public Use
  Company Number: 203888

PATIENT
  Age: 59 Year
  Sex: Male

DRUGS (11)
  1. MABTHERA(RITUXIMAB) CONC FOR SOLUTION FOR INFUSION [Suspect]
     Indication: LYMPHOMA
     Dosage: 375 MG/M2, 1/WEEK, INTRAVENOUS
     Route: 042
     Dates: start: 20031021
  2. DHAP (CISPLATIN, CYTARABINE, DEXAMETHASONE) [Concomitant]
  3. DHA (DOCOSAHEXAENOLIC ACID) [Concomitant]
  4. COTRIM FORTE (TRIMETHOPRIM, SULFAMETHOXAZOLE) [Concomitant]
  5. ALLOPURINOL [Concomitant]
  6. BELOC (METOPROLOL TARTRATE) [Concomitant]
  7. PRAVASTATIN SODIUM [Concomitant]
  8. UNAT (TORSEMIDE) [Concomitant]
  9. ASS (ASPIRIN) [Concomitant]
  10. PANTOZOL (PANTOPRAZOLE) [Concomitant]
  11. PLAVIX [Concomitant]

REACTIONS (6)
  - AUTOIMMUNE DISORDER [None]
  - DERMATITIS EXFOLIATIVE [None]
  - DRUG TOXICITY [None]
  - ENTEROCOLITIS HAEMORRHAGIC [None]
  - HEPATITIS [None]
  - PULMONARY EMBOLISM [None]
